FAERS Safety Report 5272347-0 (Version None)
Quarter: 2007Q1

REPORT INFORMATION
  Report Type: 
  Country: None (occurrence: None)
  Receive Date: 20070320
  Receipt Date: 20070320
  Transmission Date: 20070707
  Serious: Yes (Other)
  Sender: FDA-Public Use
  Company Number: None

PATIENT
  Age: 54 Year
  Sex: Female
  Weight: 75 kg

DRUGS (2)
  1. VANCOMYCIN [Suspect]
     Dosage: 750MG IV Q12 H R
     Route: 042
  2. LEVAQUIN [Concomitant]

REACTIONS (1)
  - DYSPNOEA [None]
